FAERS Safety Report 6019743-1 (Version None)
Quarter: 2008Q4

REPORT INFORMATION
  Report Type: 
  Country: None (occurrence: None)
  Receive Date: 20081222
  Receipt Date: 20080829
  Transmission Date: 20090506
  Serious: Yes (Other)
  Sender: FDA-Public Use
  Company Number: US-WYE-H05845208

PATIENT
  Age: 39 Year
  Sex: Male
  Weight: 104.42 kg

DRUGS (3)
  1. PRISTIQ [Suspect]
     Indication: DEPRESSION
     Dosage: ORAL
     Route: 048
     Dates: start: 20080827, end: 20080829
  2. METFORMIN HCL [Concomitant]
  3. LISINOPRIL [Concomitant]

REACTIONS (3)
  - CHILLS [None]
  - DIZZINESS [None]
  - INCOHERENT [None]
